FAERS Safety Report 7754023-5 (Version None)
Quarter: 2011Q3

REPORT INFORMATION
  Report Type: 
  Country: None (occurrence: None)
  Receive Date: 20110915
  Receipt Date: 20110912
  Transmission Date: 20111222
  Serious: Yes (Hospitalization, Disabling)
  Sender: FDA-Public Use
  Company Number: PHHO2008DE04201

PATIENT
  Sex: Male

DRUGS (3)
  1. EVEROLIMUS [Suspect]
     Dosage: 0.75 MG, QD
     Route: 048
     Dates: start: 20080321, end: 20080321
  2. EVEROLIMUS [Suspect]
     Indication: RENAL TRANSPLANT
     Dosage: 0.75 MG, BID
     Route: 048
     Dates: start: 20080312, end: 20080320
  3. MYFORTIC [Concomitant]
     Indication: RENAL TRANSPLANT

REACTIONS (4)
  - HEMIPARESIS [None]
  - CEREBROVASCULAR ACCIDENT [None]
  - THROMBOCYTOPENIA [None]
  - APHASIA [None]
